FAERS Safety Report 8557290 (Version 3)
Quarter: 2013Q2

REPORT INFORMATION
  Report Type: Report from Study
  Country: US (occurrence: US)
  Receive Date: 20120511
  Receipt Date: 20130524
  Transmission Date: 20140414
  Serious: Yes (Other)
  Sender: FDA-Public Use
  Company Number: US-BAYER-2012-044242

PATIENT
  Age: 54 Year
  Sex: Female

DRUGS (5)
  1. BETASERON [Suspect]
     Indication: MULTIPLE SCLEROSIS
     Dosage: 8 MIU, QOD W/ BETAJECT
     Route: 058
     Dates: start: 20120427
  2. BETASERON [Suspect]
     Indication: MULTIPLE SCLEROSIS
     Dosage: 8 MIU, QOD W/ BETAJECT
     Route: 058
     Dates: start: 20060422, end: 20070321
  3. BETASERON [Suspect]
     Indication: MULTIPLE SCLEROSIS
     Dosage: 2 MIU, QOD
     Route: 058
     Dates: start: 20120427
  4. TYLENOL EXTRA STRENGTH [Concomitant]
     Indication: PAIN
  5. TYLENOL EXTRA STRENGTH [Concomitant]
     Indication: PREMEDICATION

REACTIONS (7)
  - Abasia [Not Recovered/Not Resolved]
  - Muscular weakness [Recovering/Resolving]
  - Fall [Recovered/Resolved]
  - Pain in extremity [Recovered/Resolved]
  - Insomnia [Not Recovered/Not Resolved]
  - Injection site pain [Recovered/Resolved]
  - Injection site erythema [Recovered/Resolved]
